FAERS Safety Report 6875052-X (Version None)
Quarter: 2010Q3

REPORT INFORMATION
  Report Type: 
  Country: None (occurrence: None)
  Receive Date: 20100727
  Receipt Date: 20100714
  Transmission Date: 20110219
  Serious: Yes (Other)
  Sender: FDA-Public Use
  Company Number: CN-PFIZER INC-2010083608

PATIENT
  Age: 44 Year
  Sex: Male
  Weight: 78 kg

DRUGS (1)
  1. VIAGRA [Suspect]
     Indication: SEXUAL DYSFUNCTION
     Dosage: 50 MG, SINGLE
     Route: 048
     Dates: start: 20100302, end: 20100302

REACTIONS (2)
  - RETINAL VASCULITIS [None]
  - TINNITUS [None]
